FAERS Safety Report 8133083-6 (Version None)
Quarter: 2012Q1

REPORT INFORMATION
  Report Type: 
  Country: None (occurrence: None)
  Receive Date: 20120213
  Receipt Date: 20120207
  Transmission Date: 20120608
  Serious: Yes (Hospitalization, Other)
  Sender: FDA-Public Use
  Company Number: PHHY2012CA007201

PATIENT
  Sex: Female

DRUGS (5)
  1. GILENYA [Suspect]
     Indication: RELAPSING-REMITTING MULTIPLE SCLEROSIS
     Dosage: 0.5 MG, UNK
     Dates: start: 20110507
  2. PERINDOPRIL ERBUMINE [Concomitant]
     Indication: HYPERTENSION
     Dosage: 4 MG, QD
     Route: 048
  3. ZOPICLONE [Concomitant]
     Dosage: 7.5 MG, QD
  4. SYNTHROID [Concomitant]
  5. ZOLOFT [Concomitant]
     Indication: DEPRESSION
     Dosage: UNK UKN, UNK

REACTIONS (8)
  - GRAND MAL CONVULSION [None]
  - TREMOR [None]
  - LYMPHOCYTE COUNT DECREASED [None]
  - CONFUSIONAL STATE [None]
  - ALANINE AMINOTRANSFERASE INCREASED [None]
  - GAMMA-GLUTAMYLTRANSFERASE INCREASED [None]
  - TONIC CLONIC MOVEMENTS [None]
  - LOSS OF CONSCIOUSNESS [None]
